FAERS Safety Report 8815049 (Version 1)
Quarter: 2012Q4

REPORT INFORMATION
  Report Type: 
  Country: US (occurrence: US)
  Receive Date: 20120928
  Receipt Date: 20120928
  Transmission Date: 20130627
  Serious: No
  Sender: FDA-Public Use
  Company Number: US-PFIZER INC-2012236920

PATIENT
  Age: 9 Year
  Sex: Male
  Weight: 20 kg

DRUGS (5)
  1. GENOTROPIN [Suspect]
     Indication: BODY HEIGHT BELOW NORMAL
     Dosage: 0.8 mg, 1x/day
     Dates: start: 20120917
  2. KEPPRA [Concomitant]
     Dosage: UNK
     Dates: start: 2006
  3. CONCERTA [Concomitant]
     Dosage: UNK
     Dates: start: 2006
  4. SYMBICORT [Concomitant]
     Dosage: UNK
     Dates: start: 2006
  5. GABARONE [Concomitant]
     Dosage: UNK
     Dates: start: 2006

REACTIONS (4)
  - Abnormal behaviour [Recovered/Resolved]
  - Headache [Recovered/Resolved]
  - Screaming [Recovered/Resolved]
  - Crying [Recovered/Resolved]
